FAERS Safety Report 4534310-4 (Version None)
Quarter: 2004Q4

REPORT INFORMATION
  Report Type: 
  Country: None (occurrence: None)
  Receive Date: 20041221
  Receipt Date: 20041221
  Transmission Date: 20050328
  Serious: Yes (Life-Threatening)
  Sender: FDA-Public Use
  Company Number: None

PATIENT
  Sex: Male
  Weight: 70 kg

DRUGS (9)
  1. NITROFURANTOIN [Suspect]
     Indication: PROPHYLAXIS
     Dosage: 100 MG PO QHS
     Route: 048
     Dates: start: 19980504, end: 20041027
  2. NITROFURANTOIN [Suspect]
     Indication: URINARY TRACT INFECTION
     Dosage: 100 MG PO QHS
     Route: 048
     Dates: start: 19980504, end: 20041027
  3. SPIROLACTONE [Concomitant]
  4. FUROSEMIDE [Concomitant]
  5. DILTIAZEM [Concomitant]
  6. PRAZOSIN HCL [Concomitant]
  7. MAXZIDE [Concomitant]
  8. ACETAMINOPHEN [Concomitant]
  9. ASPIRIN [Concomitant]

REACTIONS (1)
  - HEPATITIS [None]
